FAERS Safety Report 23462438 (Version 4)
Quarter: 2024Q1

REPORT INFORMATION
  Report Type: Spontaneous
  Country: MX (occurrence: MX)
  Receive Date: 20240131
  Receipt Date: 20240325
  Transmission Date: 20240410
  Serious: Yes (Death, Other)
  Sender: FDA-Public Use
  Company Number: MX-002147023-NVSC2024MX020303

PATIENT
  Age: 15 Month
  Sex: Female

DRUGS (3)
  1. CYCLOSPORINE [Suspect]
     Active Substance: CYCLOSPORINE
     Indication: Immunosuppressant drug therapy
     Route: 065
  2. MESALAMINE [Suspect]
     Active Substance: MESALAMINE
     Indication: Inflammatory bowel disease
     Dosage: UNK
     Route: 065
  3. MESALAMINE [Suspect]
     Active Substance: MESALAMINE
     Indication: Immunosuppressant drug therapy

REACTIONS (16)
  - Inflammatory bowel disease [Fatal]
  - Condition aggravated [Fatal]
  - Septic shock [Fatal]
  - Hypovolaemic shock [Fatal]
  - Hypoxic-ischaemic encephalopathy [Fatal]
  - Diffuse alveolar damage [Fatal]
  - Myopathy [Fatal]
  - Renal tubular necrosis [Fatal]
  - Pneumonia klebsiella [Unknown]
  - Haematochezia [Unknown]
  - Blister [Unknown]
  - Procalcitonin increased [Unknown]
  - Infection [Unknown]
  - Gastrointestinal inflammation [Unknown]
  - Product use in unapproved indication [Unknown]
  - Product use issue [Unknown]
